FAERS Safety Report 6155377-6 (Version None)
Quarter: 2009Q2

REPORT INFORMATION
  Report Type: 
  Country: None (occurrence: None)
  Receive Date: 20090415
  Receipt Date: 20090406
  Transmission Date: 20091009
  Serious: Yes (Hospitalization)
  Sender: FDA-Public Use
  Company Number: DE-TEVA-189510ISR

PATIENT
  Sex: Female
  Weight: 62.8 kg

DRUGS (9)
  1. FLUOROURACIL [Suspect]
     Indication: COLORECTAL CANCER METASTATIC
     Route: 042
     Dates: start: 20090127
  2. FLUOROURACIL [Suspect]
     Route: 042
     Dates: start: 20090127
  3. FOLINIC ACID [Suspect]
     Indication: COLORECTAL CANCER METASTATIC
     Route: 042
     Dates: start: 20090127
  4. IRINOTECAN HCL [Suspect]
     Indication: COLORECTAL CANCER METASTATIC
     Dates: start: 20090127
  5. CETUXIMAB [Suspect]
     Indication: COLORECTAL CANCER METASTATIC
  6. HYDROMORPHONE HYDROCHLORIDE [Concomitant]
  7. MIRTAZAPINE [Concomitant]
  8. LORAZEPAM [Concomitant]
  9. GABAPENTIN [Concomitant]

REACTIONS (1)
  - PULMONARY EMBOLISM [None]
